FAERS Safety Report 8806652 (Version 4)
Quarter: 2014Q3

REPORT INFORMATION
  Report Type: Report from Study
  Country: US (occurrence: US)
  Receive Date: 20120925
  Receipt Date: 20140822
  Transmission Date: 20150326
  Serious: Yes (Death, Hospitalization)
  Sender: FDA-Public Use
  Company Number: US-BRISTOL-MYERS SQUIBB COMPANY-15274749

PATIENT
  Age: 65 Year
  Sex: Male

DRUGS (41)
  1. COREG [Concomitant]
     Active Substance: CARVEDILOL
  2. DIOVAN HCT [Concomitant]
     Active Substance: HYDROCHLOROTHIAZIDE\VALSARTAN
  3. LASIX [Concomitant]
     Active Substance: FUROSEMIDE
  4. ULTRAM [Concomitant]
     Active Substance: TRAMADOL HYDROCHLORIDE
  5. LOSEC [Concomitant]
     Active Substance: OMEPRAZOLE
     Dates: start: 2009
  6. TRAMADOL [Concomitant]
     Active Substance: TRAMADOL
     Dosage: ER
     Dates: start: 2009
  7. DARIFENACIN HYDROBROMIDE [Concomitant]
     Active Substance: DARIFENACIN HYDROBROMIDE
  8. ESCITALOPRAM OXALATE. [Concomitant]
     Active Substance: ESCITALOPRAM OXALATE
  9. HYDROCODONE [Concomitant]
     Active Substance: HYDROCODONE
     Dosage: 1DF=1DF=7.5 UNIT NOT GIVEN.
  10. OXYCODONE [Concomitant]
     Active Substance: OXYCODONE
  11. FLOMAX [Concomitant]
     Active Substance: TAMSULOSIN HYDROCHLORIDE
     Dates: start: 2006
  12. COUMADIN [Concomitant]
     Active Substance: WARFARIN SODIUM
     Dates: start: 20100903
  13. LORTAB [Concomitant]
     Active Substance: ACETAMINOPHEN\HYDROCODONE BITARTRATE
     Dates: start: 20100805
  14. CARVEDILOL. [Concomitant]
     Active Substance: CARVEDILOL
  15. POTASSIUM [Concomitant]
     Active Substance: POTASSIUM
  16. IPILIMUMAB [Suspect]
     Active Substance: IPILIMUMAB
     Indication: MALIGNANT MELANOMA
     Dosage: NO OF COURSES: 02
     Route: 042
     Dates: start: 20100805
  17. ASPIRIN. [Concomitant]
     Active Substance: ASPIRIN
  18. FUROSEMIDE. [Concomitant]
     Active Substance: FUROSEMIDE
  19. LEXAPRO [Suspect]
     Active Substance: ESCITALOPRAM OXALATE
     Dates: start: 2009, end: 20100916
  20. NEXIUM [Concomitant]
     Active Substance: ESOMEPRAZOLE MAGNESIUM
  21. LORTAB [Concomitant]
     Active Substance: ACETAMINOPHEN\HYDROCODONE BITARTRATE
  22. OXY-IR [Concomitant]
     Active Substance: OXYCODONE HYDROCHLORIDE
  23. GLYBURIDE. [Concomitant]
     Active Substance: GLYBURIDE
     Dates: start: 2007
  24. DURAGESIC [Concomitant]
     Active Substance: FENTANYL
     Dates: start: 20100805
  25. HYDROCHLOROTHIAZIDE\VALSARTAN [Concomitant]
     Active Substance: HYDROCHLOROTHIAZIDE\VALSARTAN
  26. APAP [Concomitant]
     Active Substance: ACETAMINOPHEN
     Dosage: 1DF=500 UNIT NOT GIVEN.
  27. LISINOPRIL. [Concomitant]
     Active Substance: LISINOPRIL
  28. ZESTRIL [Concomitant]
     Active Substance: LISINOPRIL
  29. K-DUR [Concomitant]
     Active Substance: POTASSIUM CHLORIDE
  30. LIPITOR [Concomitant]
     Active Substance: ATORVASTATIN CALCIUM
     Dates: start: 2009
  31. FIBERCON [Concomitant]
     Active Substance: CALCIUM POLYCARBOPHIL
     Dates: start: 2009
  32. DIGOXIN. [Concomitant]
     Active Substance: DIGOXIN
     Dates: start: 2009
  33. TAMSULOSIN HCL [Concomitant]
     Active Substance: TAMSULOSIN
  34. ATORVASTATIN CALCIUM. [Concomitant]
     Active Substance: ATORVASTATIN CALCIUM
  35. ENABLEX [Concomitant]
     Active Substance: DARIFENACIN\DARIFENACIN HYDROBROMIDE
     Dates: start: 2006
  36. LANOXIN [Concomitant]
     Active Substance: DIGOXIN
  37. AMARYL [Concomitant]
     Active Substance: GLIMEPIRIDE
  38. LEXAPRO [Concomitant]
     Active Substance: ESCITALOPRAM OXALATE
     Dates: start: 2009, end: 20100916
  39. GLIMEPIRIDE. [Concomitant]
     Active Substance: GLIMEPIRIDE
  40. WARFARIN SODIUM. [Concomitant]
     Active Substance: WARFARIN SODIUM
     Dates: start: 20100913
  41. ESOMEPRAZOLE MAGNESIUM. [Concomitant]
     Active Substance: ESOMEPRAZOLE MAGNESIUM

REACTIONS (3)
  - Deep vein thrombosis [Recovered/Resolved]
  - Death [Fatal]
  - Hyponatraemia [Recovered/Resolved]

NARRATIVE: CASE EVENT DATE: 20100831
